FAERS Safety Report 16689728 (Version 1)
Quarter: 2019Q3

REPORT INFORMATION
  Report Type: Report from Study
  Country: PR (occurrence: PR)
  Receive Date: 20190809
  Receipt Date: 20190809
  Transmission Date: 20191004
  Serious: Yes (Other)
  Sender: FDA-Public Use
  Company Number: PR-BIOGEN-2019BI00771846

PATIENT
  Sex: Female

DRUGS (1)
  1. TYSABRI [Suspect]
     Active Substance: NATALIZUMAB
     Indication: MULTIPLE SCLEROSIS
     Route: 065

REACTIONS (6)
  - Urinary retention [Recovered/Resolved]
  - Seizure [Recovered/Resolved]
  - Multiple sclerosis [Recovered/Resolved]
  - Bladder pain [Recovered/Resolved]
  - Blood urine present [Recovered/Resolved]
  - Discomfort [Recovered/Resolved]
